FAERS Safety Report 20130134 (Version 1)
Quarter: 2021Q4

REPORT INFORMATION
  Report Type: Spontaneous
  Country: US (occurrence: None)
  Receive Date: 20211129
  Receipt Date: 20211129
  Transmission Date: 20220303
  Serious: Yes (Death)
  Sender: FDA-Public Use
  Company Number: None

PATIENT
  Age: 84 Year
  Sex: Female

DRUGS (11)
  1. SILDENAFIL [Suspect]
     Active Substance: SILDENAFIL
     Indication: Essential hypertension
     Dosage: FREQUENCY : 3 TIMES A DAY;?
     Route: 048
     Dates: start: 20180413
  2. ATENOLOL [Concomitant]
     Active Substance: ATENOLOL
  3. CALCIUM CITR TAB + D [Concomitant]
  4. CELEBREX [Concomitant]
     Active Substance: CELECOXIB
  5. GABAPENTIN TAB [Concomitant]
  6. GLUCOSAMINE CAP [Concomitant]
  7. MULTIVITAMIN TAB [Concomitant]
  8. NATURAL FIBER POW [Concomitant]
  9. OCUVITE TAB LUTEIN [Concomitant]
  10. VITAMIN E [Concomitant]
     Active Substance: .ALPHA.-TOCOPHEROL
  11. WARFARIN TAB [Concomitant]

REACTIONS (1)
  - Death [None]

NARRATIVE: CASE EVENT DATE: 20211127
